APPROVED DRUG PRODUCT: MAOLATE
Active Ingredient: CHLORPHENESIN CARBAMATE
Strength: 400MG
Dosage Form/Route: TABLET;ORAL
Application: N014217 | Product #002
Applicant: PAMLAB LLC
Approved: Approved Prior to Jan 1, 1982 | RLD: No | RS: No | Type: DISCN